FAERS Safety Report 25975857 (Version 1)
Quarter: 2025Q4

REPORT INFORMATION
  Report Type: Spontaneous
  Country: US (occurrence: US)
  Receive Date: 20251029
  Receipt Date: 20251029
  Transmission Date: 20260118
  Serious: Yes (Death, Other)
  Sender: AMGEN
  Company Number: US-AMGEN-USASP2025211525

PATIENT
  Age: 71 Year
  Sex: Male

DRUGS (1)
  1. BEVACIZUMAB [Suspect]
     Active Substance: BEVACIZUMAB
     Indication: Hepatocellular carcinoma
     Dosage: UNK
     Route: 065

REACTIONS (5)
  - Death [Fatal]
  - Hepatocellular carcinoma [Unknown]
  - IgA nephropathy [Unknown]
  - Diabetic nephropathy [Unknown]
  - Off label use [Unknown]
